FAERS Safety Report 9303745 (Version 1)
Quarter: 2013Q2

REPORT INFORMATION
  Report Type: Spontaneous
  Country: US (occurrence: US)
  Receive Date: 20130522
  Receipt Date: 20130522
  Transmission Date: 20140414
  Serious: Yes (Other)
  Sender: FDA-Public Use
  Company Number: US-GLAXOSMITHKLINE-A1023557A

PATIENT
  Age: 27 Year
  Sex: Male

DRUGS (2)
  1. VOTRIENT [Suspect]
     Indication: RENAL CELL CARCINOMA
     Dosage: 800MG PER DAY
     Route: 048
     Dates: start: 20121223, end: 20130220
  2. NO CONCURRENT MEDICATION [Concomitant]

REACTIONS (2)
  - Renal cancer [Unknown]
  - Drug ineffective [Unknown]
